FAERS Safety Report 9882192 (Version 2)
Quarter: 2014Q2

REPORT INFORMATION
  Report Type: Spontaneous
  Country: DE (occurrence: DE)
  Receive Date: 20140207
  Receipt Date: 20140612
  Transmission Date: 20141212
  Serious: Yes (Death, Hospitalization)
  Sender: FDA-Public Use
  Company Number: GXKR2014DE000779

PATIENT
  Sex: 0

DRUGS (14)
  1. METFORMIN [Suspect]
     Indication: TYPE 2 DIABETES MELLITUS
     Dosage: 500 MG, BID
     Route: 048
     Dates: start: 2011, end: 201401
  2. ONGLYZA [Suspect]
     Indication: TYPE 2 DIABETES MELLITUS
     Dosage: 5 MG, QD
     Route: 048
     Dates: start: 201309, end: 201401
  3. MADOPAR [Concomitant]
     Indication: RESTLESSNESS
     Dosage: 62.5 MG, QD
     Route: 048
  4. MIRTAZAPIN [Concomitant]
     Indication: DEPRESSION
     Dosage: 30 MG, QD
     Route: 048
  5. ROPINIROL [Concomitant]
     Dosage: 0.5 MG, QD
     Route: 048
  6. GABAPENTIN [Concomitant]
     Dosage: 300 MG, TID
     Route: 048
  7. ATORVASTATIN [Concomitant]
     Indication: HYPERLIPIDAEMIA
     Dosage: 10 MG, QD
     Route: 048
  8. PANTOPRAZOL [Concomitant]
     Dosage: 40 MG, QD
     Route: 048
  9. NOVALGIN                                /SCH/ [Concomitant]
     Dosage: 500 MG, QID
     Route: 048
  10. TILIDIN [Concomitant]
     Dosage: 1 DF, BID (1-0-1)
     Route: 048
  11. BIO FOLIC ACID [Concomitant]
     Dosage: 5 MG, QD
     Route: 048
  12. MCP//METOCLOPRAMIDE [Concomitant]
     Dosage: 30 GTT, TID
     Route: 048
  13. KALINOR-BRAUSETABLETTEN [Concomitant]
     Dosage: 1 DF, QD (1-0-0)
     Route: 048
  14. ACTRAPHANE [Concomitant]
     Dosage: ACCORDING TO SCHEME
     Route: 048

REACTIONS (1)
  - Pancreatitis acute [Fatal]
